FAERS Safety Report 10189922 (Version 1)
Quarter: 2014Q2

REPORT INFORMATION
  Report Type: Spontaneous
  Country: JP (occurrence: JP)
  Receive Date: 20140522
  Receipt Date: 20140522
  Transmission Date: 20141212
  Serious: Yes (Hospitalization)
  Sender: FDA-Public Use
  Company Number: JP-MYLANLABS-2014S1010940

PATIENT
  Age: 64 Year
  Sex: Female
  Weight: 56 kg

DRUGS (1)
  1. PREDNISOLONE [Suspect]
     Indication: AUTOIMMUNE HAEMOLYTIC ANAEMIA
     Dosage: 40 MG/DAY
     Route: 065

REACTIONS (8)
  - Paraparesis [Recovering/Resolving]
  - Epidural lipomatosis [Recovering/Resolving]
  - Osteoporotic fracture [Recovering/Resolving]
  - Spinal fracture [Recovering/Resolving]
  - Urinary retention [Unknown]
  - Cushingoid [Unknown]
  - Central obesity [Unknown]
  - Kyphosis [Unknown]
